FAERS Safety Report 10096787 (Version 1)
Quarter: 2014Q2

REPORT INFORMATION
  Report Type: Spontaneous
  Country: US (occurrence: US)
  Receive Date: 20140422
  Receipt Date: 20140422
  Transmission Date: 20141212
  Serious: No
  Sender: FDA-Public Use
  Company Number: US-009507513-1404USA010687

PATIENT
  Age: 6 Year
  Sex: Male

DRUGS (3)
  1. CLARITIN CHEWABLE TABLETS [Suspect]
     Indication: SEASONAL ALLERGY
  2. CLARITIN CHEWABLE TABLETS [Suspect]
     Indication: COUGH
  3. CLARITIN CHEWABLE TABLETS [Suspect]
     Indication: SNEEZING

REACTIONS (1)
  - Drug effect decreased [Unknown]
